FAERS Safety Report 25312238 (Version 1)
Quarter: 2025Q2

REPORT INFORMATION
  Report Type: Spontaneous
  Country: US (occurrence: US)
  Receive Date: 20250510
  Receipt Date: 20250510
  Transmission Date: 20250717
  Serious: Yes (Other)
  Sender: NOVO NORDISK
  Company Number: US-NOVOPROD-1416144

PATIENT
  Age: 48 Year
  Sex: Female

DRUGS (1)
  1. WEGOVY [Suspect]
     Active Substance: SEMAGLUTIDE
     Indication: Obesity
     Dosage: 2.4 MG, QW
     Route: 058
     Dates: start: 20240206, end: 20250415

REACTIONS (2)
  - Cholelithiasis [Recovered/Resolved]
  - Biliary obstruction [Recovered/Resolved]

NARRATIVE: CASE EVENT DATE: 20250409
